FAERS Safety Report 9905512 (Version 1)
Quarter: 2014Q1

REPORT INFORMATION
  Report Type: Spontaneous
  Country: US (occurrence: US)
  Receive Date: 20140218
  Receipt Date: 20140218
  Transmission Date: 20141002
  Serious: Yes (Death)
  Sender: FDA-Public Use
  Company Number: US-GLAXOSMITHKLINE-A1061232A

PATIENT
  Age: 61 Year
  Sex: Male

DRUGS (1)
  1. MEPRON [Suspect]
     Indication: ANTI-INFECTIVE THERAPY
     Route: 048
     Dates: start: 20130306

REACTIONS (1)
  - General physical health deterioration [Fatal]
